FAERS Safety Report 9347392 (Version 2)
Quarter: 2013Q3

REPORT INFORMATION
  Report Type: Spontaneous
  Country: JP (occurrence: JP)
  Receive Date: 20130613
  Receipt Date: 20130712
  Transmission Date: 20140515
  Serious: Yes (Other)
  Sender: FDA-Public Use
  Company Number: JP-GILEAD-2013-0073426

PATIENT
  Age: 67 Year
  Sex: Female

DRUGS (4)
  1. HEPSERA [Suspect]
     Indication: CHRONIC HEPATITIS B
     Dosage: 10 MG, QD
     Route: 048
     Dates: start: 20080304, end: 20130325
  2. HEPSERA [Suspect]
     Dosage: 10MG ALTERNATE DAYS
     Route: 048
     Dates: start: 20130326
  3. ZEFIX [Concomitant]
     Indication: CHRONIC HEPATITIS B
     Dosage: 100 MG, QD
     Route: 048
  4. MYSLEE [Concomitant]
     Indication: INSOMNIA
     Dosage: 10MG PER DAY
     Route: 048

REACTIONS (3)
  - Blood potassium decreased [Unknown]
  - Blood phosphorus decreased [Recovered/Resolved]
  - Fanconi syndrome acquired [Recovering/Resolving]
